FAERS Safety Report 9657412 (Version 1)
Quarter: 2013Q4

REPORT INFORMATION
  Report Type: Spontaneous
  Country: AU (occurrence: AU)
  Receive Date: 20131030
  Receipt Date: 20131030
  Transmission Date: 20140711
  Serious: Yes (Other)
  Sender: FDA-Public Use
  Company Number: AU-ROCHE-1292952

PATIENT
  Sex: Female

DRUGS (5)
  1. MABTHERA [Suspect]
     Indication: MANTLE CELL LYMPHOMA
     Route: 065
  2. LORAZEPAM [Concomitant]
  3. PANADOL [Concomitant]
  4. DEXA [Concomitant]
  5. LORATADINE [Concomitant]

REACTIONS (3)
  - Infusion related reaction [Unknown]
  - Loss of consciousness [Unknown]
  - Non-cardiogenic pulmonary oedema [Unknown]
